FAERS Safety Report 8866142 (Version 2)
Quarter: 2012Q4

REPORT INFORMATION
  Report Type: Report from Study
  Country: DE (occurrence: DE)
  Receive Date: 20121025
  Receipt Date: 20121101
  Transmission Date: 20130627
  Serious: Yes (Death, Other)
  Sender: FDA-Public Use
  Company Number: DE-ROCHE-1146394

PATIENT
  Sex: Male

DRUGS (3)
  1. METHOXY POLYETHYLENE GLYCOL-EPOETIN BETA [Suspect]
     Indication: NEPHROGENIC ANAEMIA
     Route: 042
     Dates: end: 20110406
  2. METHOXY POLYETHYLENE GLYCOL-EPOETIN BETA [Suspect]
     Route: 042
     Dates: start: 20110407, end: 20110504
  3. METHOXY POLYETHYLENE GLYCOL-EPOETIN BETA [Suspect]
     Route: 042
     Dates: start: 20110602, end: 20110624

REACTIONS (5)
  - Peripheral arterial occlusive disease [Fatal]
  - Nephrogenic anaemia [Fatal]
  - Haemoglobin abnormal [Recovered/Resolved]
  - Haemoglobin decreased [Recovered/Resolved]
  - Amputation [Recovered/Resolved]
